FAERS Safety Report 4771105-0 (Version None)
Quarter: 2005Q3

REPORT INFORMATION
  Report Type: 
  Country: None (occurrence: None)
  Receive Date: 20050914
  Receipt Date: 20050902
  Transmission Date: 20060218
  Serious: Yes (Other)
  Sender: FDA-Public Use
  Company Number: 2005124468

PATIENT
  Age: 44 Year
  Sex: Female
  Weight: 117.9352 kg

DRUGS (8)
  1. DIFLUCAN [Suspect]
     Indication: SYSTEMIC MYCOSIS
     Dosage: 400 MG (400 MG, QD INTERVAL:  EVER DAY)
     Dates: start: 20050101
  2. VITAMIN A (NATURAL) CAP [Suspect]
     Indication: ILL-DEFINED DISORDER
  3. CORTEF [Concomitant]
  4. ARMOUR TYROID (THYROID) [Concomitant]
  5. LEXAPRO [Concomitant]
  6. TESTOSTERONE CREAM (TESTOSTERONE) [Concomitant]
  7. ESTRIOL (ESTRIOL) [Concomitant]
  8. ESTRADIOL [Concomitant]

REACTIONS (11)
  - CONTUSION [None]
  - DYSPNOEA [None]
  - EYE DISORDER [None]
  - FATIGUE [None]
  - FEELING ABNORMAL [None]
  - HEPATIC ENZYME INCREASED [None]
  - INCORRECT DOSE ADMINISTERED [None]
  - LIVER DISORDER [None]
  - NERVOUS SYSTEM DISORDER [None]
  - SYSTEMIC MYCOSIS [None]
  - TREATMENT NONCOMPLIANCE [None]
